FAERS Safety Report 8586908-4 (Version None)
Quarter: 2012Q3

REPORT INFORMATION
  Report Type: 
  Country: None (occurrence: None)
  Receive Date: 20120810
  Receipt Date: 20120730
  Transmission Date: 20120928
  Serious: Yes (Other)
  Sender: FDA-Public Use
  Company Number: CHPA2012US016994

PATIENT
  Age: 73 Year
  Sex: Female

DRUGS (3)
  1. ZYBAN [Suspect]
     Dosage: 2 DF, QD
     Route: 048
     Dates: start: 20120702, end: 20120727
  2. ZYBAN [Suspect]
     Indication: SMOKING CESSATION THERAPY
     Dosage: 1 DF, QD (150 MG)
     Route: 048
     Dates: start: 20120629, end: 20120702
  3. NICOTINE [Suspect]
     Indication: SMOKING CESSATION THERAPY
     Dosage: 1 DF, QD (PATCH ON AT 8:00 AM, TAKE OFF PRIOR TO BEDTIME)
     Route: 062
     Dates: start: 20120723, end: 20120724

REACTIONS (1)
  - DEAFNESS UNILATERAL [None]
